FAERS Safety Report 6398824-7 (Version None)
Quarter: 2009Q4

REPORT INFORMATION
  Report Type: 
  Country: None (occurrence: None)
  Receive Date: 20091013
  Receipt Date: 20091006
  Transmission Date: 20100525
  Serious: No
  Sender: FDA-Public Use
  Company Number: US-B.I. PHARMACEUTICALS,INC./RIDGEFIELD-2009-BP-09714BP

PATIENT
  Age: 60 Year
  Sex: Male

DRUGS (3)
  1. COMBIVENT [Suspect]
     Indication: DYSPNOEA
     Dosage: 6 PUF
     Route: 055
     Dates: start: 20070901
  2. HYDROCODONE [Concomitant]
     Indication: PAIN
     Dates: start: 20070901
  3. METOPROLOL [Concomitant]
     Indication: HYPERTENSION

REACTIONS (2)
  - DYSGEUSIA [None]
  - RASH [None]
